FAERS Safety Report 21682176 (Version 1)
Quarter: 2022Q4

REPORT INFORMATION
  Report Type: Spontaneous
  Country: US (occurrence: US)
  Receive Date: 20221205
  Receipt Date: 20221205
  Transmission Date: 20230112
  Serious: Yes (Other)
  Sender: FDA-Public Use
  Company Number: US-SA-2022SA489588

PATIENT
  Age: 48 Year
  Sex: Male

DRUGS (2)
  1. INSULIN LISPRO [Suspect]
     Active Substance: INSULIN LISPRO
     Indication: Type 2 diabetes mellitus
     Dosage: 5 U, TID (WITH MEALS)
  2. INSULIN DETEMIR [Suspect]
     Active Substance: INSULIN DETEMIR
     Indication: Type 2 diabetes mellitus
     Dosage: 25 U, HS

REACTIONS (5)
  - Neuropathy peripheral [Recovered/Resolved]
  - Hypoaesthesia [Recovered/Resolved]
  - Asthenia [Recovered/Resolved]
  - Muscle contractions involuntary [Recovered/Resolved]
  - Piriformis syndrome [Unknown]
